FAERS Safety Report 23327395 (Version 1)
Quarter: 2023Q4

REPORT INFORMATION
  Report Type: Spontaneous
  Country: US (occurrence: US)
  Receive Date: 20231221
  Receipt Date: 20231221
  Transmission Date: 20240110
  Serious: No
  Sender: FDA-Public Use
  Company Number: US-009507513-2312USA000917

PATIENT
  Age: 64 Year
  Sex: Male

DRUGS (6)
  1. VERQUVO [Suspect]
     Active Substance: VERICIGUAT
     Dosage: 2.5 MILLIGRAM/1X DAILY
     Route: 048
     Dates: end: 202311
  2. OZEMPIC [Suspect]
     Active Substance: SEMAGLUTIDE
  3. ENTRESTO [Concomitant]
     Active Substance: SACUBITRIL\VALSARTAN
     Dosage: (MAX. DOSE)
  4. CARVEDILOL [Concomitant]
     Active Substance: CARVEDILOL
  5. FARXIGA [Concomitant]
     Active Substance: DAPAGLIFLOZIN PROPANEDIOL
  6. ROSUVASTATIN [Concomitant]
     Active Substance: ROSUVASTATIN

REACTIONS (7)
  - Drug intolerance [Unknown]
  - Visual impairment [Unknown]
  - Photophobia [Unknown]
  - Gait disturbance [Unknown]
  - Hypokinesia [Unknown]
  - Weight decreased [Unknown]
  - Hypotension [Unknown]

NARRATIVE: CASE EVENT DATE: 20231123
